FAERS Safety Report 9699563 (Version 1)
Quarter: 2013Q4

REPORT INFORMATION
  Report Type: Spontaneous
  Country: US (occurrence: US)
  Receive Date: 20131120
  Receipt Date: 20131120
  Transmission Date: 20140711
  Serious: Yes (Congenital Anomaly)
  Sender: FDA-Public Use
  Company Number: PHHY2013US131360

PATIENT
  Sex: 0

DRUGS (5)
  1. MYCOPHENOLATE MOFETIL [Suspect]
     Dosage: FOETAL DRUG EXPOSURE VIA FATHER
     Route: 065
  2. TACROLIMUS [Suspect]
     Dosage: FOETAL DRUG EXPOSURE VIA FATHER
     Route: 065
  3. AMLODIPINE [Suspect]
     Dosage: FOETAL DRUG EXPOSURE VIA FATHER
     Route: 065
  4. PREDNISONE [Suspect]
     Dosage: FOETAL DRUG EXPOSURE VIA FATHER
     Route: 065
  5. LAMIVUDINE [Suspect]
     Dosage: FOETAL DRUG EXPOSURE VIA FATHER
     Route: 065

REACTIONS (2)
  - Ankyloglossia congenital [Unknown]
  - Exposure via father [Unknown]
